FAERS Safety Report 7280861-1 (Version None)
Quarter: 2011Q1

REPORT INFORMATION
  Report Type: 
  Country: None (occurrence: None)
  Receive Date: 20110208
  Receipt Date: 20110206
  Transmission Date: 20110831
  Serious: No
  Sender: FDA-Public Use
  Company Number: US-PFIZER INC-2011026468

PATIENT
  Sex: Female
  Weight: 70.295 kg

DRUGS (1)
  1. ADVIL [Suspect]
     Indication: PAIN
     Dosage: UNK
     Route: 048
     Dates: start: 20110202, end: 20110204

REACTIONS (3)
  - EXPIRED DRUG ADMINISTERED [None]
  - RASH [None]
  - PRURITUS [None]
